FAERS Safety Report 9469957 (Version 3)
Quarter: 2014Q2

REPORT INFORMATION
  Report Type: Report from Study
  Country: US (occurrence: US)
  Receive Date: 20130822
  Receipt Date: 20140414
  Transmission Date: 20141212
  Serious: Yes (Life-Threatening, Hospitalization)
  Sender: FDA-Public Use
  Company Number: PHEH2013US017764

PATIENT
  Sex: Female

DRUGS (4)
  1. AFINITOR [Suspect]
     Indication: CARCINOID SYNDROME
     Dosage: 10 MG, DAILY
     Route: 048
     Dates: start: 201304
  2. AFINITOR [Suspect]
     Indication: OFF LABEL USE
  3. ZEVALIN (Y90) [Concomitant]
  4. FERROUS SULFATE [Concomitant]

REACTIONS (8)
  - Hypertensive crisis [Recovered/Resolved]
  - Blood pressure increased [Unknown]
  - Pain [Recovered/Resolved]
  - Heart rate increased [Unknown]
  - Myocardial infarction [Unknown]
  - Ulcer [Unknown]
  - Fatigue [Recovered/Resolved]
  - Thrombocytopenia [Recovered/Resolved]
